FAERS Safety Report 4393810-0 (Version None)
Quarter: 2004Q3

REPORT INFORMATION
  Report Type: 
  Country: None (occurrence: None)
  Receive Date: 20040707
  Receipt Date: 20040706
  Transmission Date: 20050211
  Serious: Yes (Hospitalization)
  Sender: FDA-Public Use
  Company Number: HQWYE602423JUN04

PATIENT
  Age: 37 Year
  Sex: Female

DRUGS (1)
  1. PREMELLE CYCLIC (CONJUGATED ESTROGENS/MEDROXYPROGESTERONE ACETATE, TAB [Suspect]
     Indication: HORMONE REPLACEMENT THERAPY
     Dosage: 1 TABLET 1X PER 1 DAY ORAL
     Route: 048
     Dates: start: 19960401, end: 20040616

REACTIONS (4)
  - AMENORRHOEA [None]
  - IRRITABILITY [None]
  - PAIN IN EXTREMITY [None]
  - PELVIC INFLAMMATORY DISEASE [None]
